FAERS Safety Report 5893033-X (Version None)
Quarter: 2008Q3

REPORT INFORMATION
  Report Type: 
  Country: None (occurrence: None)
  Receive Date: 20080923
  Receipt Date: 20070727
  Transmission Date: 20090109
  Serious: No
  Sender: FDA-Public Use
  Company Number: US-ASTRAZENECA-2007UW01933

PATIENT
  Age: 15503 Day
  Sex: Female
  Weight: 63.6 kg

DRUGS (7)
  1. SEROQUEL [Suspect]
     Indication: SLEEP DISORDER
     Route: 048
     Dates: start: 19980624, end: 20000101
  2. SEROQUEL [Suspect]
     Indication: DEPRESSION
     Route: 048
     Dates: start: 19980624, end: 20000101
  3. SEROQUEL [Suspect]
     Route: 048
     Dates: start: 20050601, end: 20050815
  4. SEROQUEL [Suspect]
     Route: 048
     Dates: start: 20050601, end: 20050815
  5. KLONOPIN [Concomitant]
     Dates: start: 20050101
  6. LORAZEPAM [Concomitant]
  7. LEXAPRO [Concomitant]

REACTIONS (3)
  - OSTEOPENIA [None]
  - ROAD TRAFFIC ACCIDENT [None]
  - TYPE 2 DIABETES MELLITUS [None]
